FAERS Safety Report 24539418 (Version 1)
Quarter: 2024Q4

REPORT INFORMATION
  Report Type: Spontaneous
  Country: US (occurrence: US)
  Receive Date: 20241023
  Receipt Date: 20241023
  Transmission Date: 20250115
  Serious: No
  Sender: ELI LILLY AND COMPANY
  Company Number: US-ELI_LILLY_AND_COMPANY-US202410014773

PATIENT
  Age: 51 Year
  Sex: Female

DRUGS (1)
  1. JAYPIRCA [Suspect]
     Active Substance: PIRTOBRUTINIB
     Indication: Product used for unknown indication
     Dosage: 100 MG, UNKNOWN
     Route: 065
     Dates: start: 202406

REACTIONS (1)
  - Rash pruritic [Unknown]
